FAERS Safety Report 15156420 (Version 2)
Quarter: 2020Q3

REPORT INFORMATION
  Report Type: Report from Study
  Country: US (occurrence: US)
  Receive Date: 20180717
  Receipt Date: 20200701
  Transmission Date: 20201102
  Serious: Yes (Death)
  Sender: FDA-Public Use
  Company Number: US-ACTELION-A-US2017-155950

PATIENT
  Age: 61 Year
  Sex: Male

DRUGS (1)
  1. OPSUMIT [Suspect]
     Active Substance: MACITENTAN
     Indication: PULMONARY HYPERTENSION
     Dosage: UNK
     Route: 048
     Dates: start: 20160506, end: 20180710

REACTIONS (14)
  - Disease progression [Fatal]
  - Alanine aminotransferase increased [Not Recovered/Not Resolved]
  - Weight decreased [Unknown]
  - Pulmonary hypertension [Fatal]
  - Aspartate aminotransferase increased [Not Recovered/Not Resolved]
  - Decreased appetite [Unknown]
  - Dyspnoea [Unknown]
  - Hepatic enzyme increased [Not Recovered/Not Resolved]
  - Renal failure [Fatal]
  - Blood bilirubin increased [Not Recovered/Not Resolved]
  - Oedema peripheral [Unknown]
  - Balance disorder [Unknown]
  - Orthopnoea [Unknown]
  - Hypoxia [Unknown]

NARRATIVE: CASE EVENT DATE: 201612
